FAERS Safety Report 23907098 (Version 1)
Quarter: 2024Q2

REPORT INFORMATION
  Report Type: Spontaneous
  Country: US (occurrence: US)
  Receive Date: 20240528
  Receipt Date: 20240528
  Transmission Date: 20240716
  Serious: No
  Sender: FDA-Public Use
  Company Number: US-ADVANZ PHARMA-202208005196

PATIENT

DRUGS (6)
  1. HYDROXYCHLOROQUINE [Suspect]
     Active Substance: HYDROXYCHLOROQUINE
     Indication: Product used for unknown indication
     Dosage: UNK, PLAQUENIL
     Route: 048
  2. HUMIRA [Suspect]
     Active Substance: ADALIMUMAB
     Indication: Product used for unknown indication
     Dosage: UNK, CITRATE FREE (1 IN 10 D)
     Route: 058
     Dates: start: 202201, end: 2022
  3. HUMIRA [Suspect]
     Active Substance: ADALIMUMAB
     Dosage: UNK, CITRATE FREE
     Route: 058
     Dates: start: 2022
  4. PFIZER-BIONTECH COVID-19 VACCINE [Concomitant]
     Active Substance: TOZINAMERAN
     Indication: COVID-19 immunisation
     Dosage: UNK, 1ST DOSE (1 IN 1 ONCE)
     Route: 030
     Dates: start: 20210118
  5. PFIZER-BIONTECH COVID-19 VACCINE [Concomitant]
     Active Substance: TOZINAMERAN
     Dosage: UNK, 2ND DOSE (1 IN 1 ONCE)
     Route: 030
     Dates: start: 20210210
  6. PFIZER-BIONTECH COVID-19 VACCINE [Concomitant]
     Active Substance: TOZINAMERAN
     Dosage: UNK, 3RD DOSE, BOOSTER DOSE, (1 IN 1 ONCE)
     Route: 030
     Dates: start: 20211115

REACTIONS (6)
  - Injection site erythema [Unknown]
  - Injection site haemorrhage [Not Recovered/Not Resolved]
  - Joint swelling [Unknown]
  - Inflammation [Unknown]
  - Contusion [Unknown]
  - Incorrect dose administered [Not Recovered/Not Resolved]

NARRATIVE: CASE EVENT DATE: 20220101
